FAERS Safety Report 7719130-1 (Version None)
Quarter: 2011Q3

REPORT INFORMATION
  Report Type: 
  Country: None (occurrence: None)
  Receive Date: 20110830
  Receipt Date: 20110823
  Transmission Date: 20111222
  Serious: Yes (Death, Other)
  Sender: FDA-Public Use
  Company Number: CA-TEVA-297924USA

PATIENT
  Age: 50 Year
  Sex: Female

DRUGS (2)
  1. DOXORUBICIN HCL [Suspect]
  2. CYCLOPHOSPHAMIDE [Suspect]

REACTIONS (5)
  - FOLLICULITIS [None]
  - METASTASIS [None]
  - ALOPECIA [None]
  - METASTASES TO MENINGES [None]
  - METASTASES TO BONE [None]
